FAERS Safety Report 9610970 (Version 1)
Quarter: 2013Q4

REPORT INFORMATION
  Report Type: Spontaneous
  Country: US (occurrence: US)
  Receive Date: 20131009
  Receipt Date: 20131009
  Transmission Date: 20140711
  Serious: Yes (Other)
  Sender: FDA-Public Use
  Company Number: US-009507513-1310USA000267

PATIENT
  Sex: Female

DRUGS (2)
  1. FOSAMAX [Suspect]
     Dosage: UNK
     Route: 048
     Dates: start: 200501, end: 200904
  2. BONIVA [Suspect]
     Dosage: UNK
     Dates: start: 20090407, end: 20101030

REACTIONS (1)
  - Femur fracture [Unknown]
